FAERS Safety Report 7315622-8 (Version None)
Quarter: 2011Q1

REPORT INFORMATION
  Report Type: 
  Country: None (occurrence: None)
  Receive Date: 20110215
  Receipt Date: 20110204
  Transmission Date: 20110831
  Serious: Yes (Life-Threatening, Hospitalization, Other)
  Sender: FDA-Public Use
  Company Number: GER/UKI/10/0013275

PATIENT
  Age: 75 Year
  Sex: Female

DRUGS (5)
  1. NSAID NOS (NSAID'S) [Concomitant]
  2. OMEPRAZOLE [Suspect]
     Indication: DRUG THERAPY
  3. BENDROFLUMETHIAZIDE (BENDROFLUMETHIAZIDE) [Concomitant]
  4. PANTOPRAZOLE SODIUM [Suspect]
     Indication: PRODUCT USED FOR UNKNOWN INDICATION
     Dosage: 40 MG, 1 IN 1 D
  5. MAGNESIUM (MAGNESIUM) [Concomitant]

REACTIONS (7)
  - PULMONARY OEDEMA [None]
  - HYPOMAGNESAEMIA [None]
  - BLOOD CALCIUM DECREASED [None]
  - LARYNGEAL OEDEMA [None]
  - GRAND MAL CONVULSION [None]
  - FALL [None]
  - CONVULSION [None]
